FAERS Safety Report 23655692 (Version 2)
Quarter: 2024Q2

REPORT INFORMATION
  Report Type: Spontaneous
  Country: JP (occurrence: JP)
  Receive Date: 20240321
  Receipt Date: 20240402
  Transmission Date: 20240715
  Serious: Yes (Other)
  Sender: FDA-Public Use
  Company Number: JP-MSD-2402JPN000916J

PATIENT
  Age: 68 Year
  Sex: Male

DRUGS (3)
  1. KEYTRUDA [Suspect]
     Active Substance: PEMBROLIZUMAB
     Indication: Non-small cell lung cancer
     Dosage: 200 MILLIGRAM, Q3W
     Route: 041
     Dates: start: 201703, end: 201709
  2. KEYTRUDA [Suspect]
     Active Substance: PEMBROLIZUMAB
     Indication: Lung cyst
  3. KEYTRUDA [Suspect]
     Active Substance: PEMBROLIZUMAB
     Indication: Lung opacity

REACTIONS (1)
  - Immune-mediated renal disorder [Recovered/Resolved]

NARRATIVE: CASE EVENT DATE: 20170901
